FAERS Safety Report 9307983 (Version 3)
Quarter: 2013Q3

REPORT INFORMATION
  Report Type: Spontaneous
  Country: US (occurrence: US)
  Receive Date: 20130524
  Receipt Date: 20130802
  Transmission Date: 20140515
  Serious: Yes (Hospitalization, Other)
  Sender: FDA-Public Use
  Company Number: US-AMGEN-USASP2013036366

PATIENT
  Age: 58 Year
  Sex: Female
  Weight: 134.7 kg

DRUGS (5)
  1. EPOGEN [Suspect]
     Indication: NEPHROGENIC ANAEMIA
     Dosage: 20000 UNIT, 3 TIMES/WK
     Route: 065
     Dates: start: 2008, end: 20130520
  2. DILANTIN                           /00017401/ [Concomitant]
     Dosage: UNK UNK, QD
     Route: 048
  3. ZOLOFT [Concomitant]
     Indication: DEPRESSION
     Dosage: 100 UNK, QD
     Route: 048
  4. LANTUS [Concomitant]
     Indication: DIABETES MELLITUS
     Dosage: 200 UNK, QD
     Route: 048
  5. LEVOTHYROXINE [Concomitant]
     Indication: HYPOTHYROIDISM
     Dosage: 200 UNK, QD
     Route: 048

REACTIONS (3)
  - Haemoglobin decreased [Not Recovered/Not Resolved]
  - Anaemia [Unknown]
  - Therapeutic response decreased [Unknown]
